FAERS Safety Report 5239909-8 (Version None)
Quarter: 2007Q1

REPORT INFORMATION
  Report Type: 
  Country: None (occurrence: None)
  Receive Date: 20070216
  Receipt Date: 20070205
  Transmission Date: 20070707
  Serious: Yes (Disabling, Other)
  Sender: FDA-Public Use
  Company Number: FR-PFIZER INC-2006153876

PATIENT
  Sex: Male
  Weight: 72 kg

DRUGS (5)
  1. LYRICA [Suspect]
     Indication: NEURALGIA
     Dosage: DAILY DOSE:75MG
     Route: 048
  2. NEURONTIN [Suspect]
  3. TETRAZEPAM [Concomitant]
     Route: 048
  4. DIAZEPAM [Concomitant]
     Route: 048
  5. DEXTROPROPOXYPHENE [Concomitant]
     Route: 048

REACTIONS (2)
  - EJACULATION DISORDER [None]
  - ERECTILE DYSFUNCTION [None]
